FAERS Safety Report 19422050 (Version 1)
Quarter: 2021Q2

REPORT INFORMATION
  Report Type: Spontaneous
  Country: US (occurrence: US)
  Receive Date: 20210616
  Receipt Date: 20210616
  Transmission Date: 20210717
  Serious: Yes (Hospitalization)
  Sender: FDA-Public Use
  Company Number: None

PATIENT
  Age: 73 Year
  Sex: Female
  Weight: 68.5 kg

DRUGS (5)
  1. ONDANSETRON. [Concomitant]
     Active Substance: ONDANSETRON
     Dates: start: 20210613, end: 20210613
  2. SODIUM CHLORIDE 0.9% IV BOLUS [Concomitant]
     Dates: start: 20210613, end: 20210613
  3. CASIRIVIMAB?IMDEVIMAB [Suspect]
     Active Substance: CASIRIVIMAB\IMDEVIMAB
     Indication: COVID-19
     Dosage: ?          OTHER FREQUENCY:ONE?TIME;?
     Route: 042
  4. ACETAMINOPHEN. [Concomitant]
     Active Substance: ACETAMINOPHEN
     Dates: start: 20210613, end: 20210613
  5. DIPHENDYDRAMINE [Concomitant]
     Dates: start: 20210613, end: 20210613

REACTIONS (3)
  - Asthenia [None]
  - Hypophagia [None]
  - Respiratory failure [None]

NARRATIVE: CASE EVENT DATE: 20210614
